FAERS Safety Report 5332101-8 (Version None)
Quarter: 2007Q2

REPORT INFORMATION
  Report Type: 
  Country: None (occurrence: None)
  Receive Date: 20070521
  Receipt Date: 20070510
  Transmission Date: 20071010
  Serious: Yes (Hospitalization)
  Sender: FDA-Public Use
  Company Number: TOR 2007-0010

PATIENT
  Age: 35 Year
  Sex: Female

DRUGS (2)
  1. FARESTON [Suspect]
     Indication: BREAST CANCER
     Dosage: 120 MG
     Route: 048
     Dates: start: 20070410, end: 20070508
  2. TAXOL [Suspect]
     Indication: BREAST CANCER
     Dosage: 120 MG
     Dates: start: 20070410, end: 20070502

REACTIONS (1)
  - ACUTE HEPATIC FAILURE [None]
